FAERS Safety Report 22174876 (Version 1)
Quarter: 2023Q2

REPORT INFORMATION
  Report Type: Report from Study
  Country: KR (occurrence: KR)
  Receive Date: 20230405
  Receipt Date: 20230405
  Transmission Date: 20230721
  Serious: Yes (Hospitalization)
  Sender: FDA-Public Use
  Company Number: KR-ABBOTT-2023A-1361874

PATIENT
  Age: 50 Year
  Sex: Male

DRUGS (5)
  1. LIPIDIL [Suspect]
     Active Substance: FENOFIBRATE
     Indication: Hyperlipidaemia
     Dosage: SUPRA TAB.
     Route: 048
     Dates: start: 20160108, end: 20160311
  2. LIPIDIL [Suspect]
     Active Substance: FENOFIBRATE
     Indication: Hyperlipidaemia
     Dosage: SUPRA TAB.
     Route: 048
     Dates: start: 20151113, end: 20160107
  3. GLIMEPIRIDE [Concomitant]
     Active Substance: GLIMEPIRIDE
     Indication: Glycosuria
     Dates: start: 20150513
  4. ROSUVASTATIN CALCIUM [Suspect]
     Active Substance: ROSUVASTATIN CALCIUM
     Indication: Hyperlipidaemia
     Route: 048
     Dates: start: 20160108, end: 20160311
  5. ROSUVASTATIN CALCIUM [Suspect]
     Active Substance: ROSUVASTATIN CALCIUM
     Indication: Hyperlipidaemia
     Route: 048
     Dates: start: 20151113, end: 20160107

REACTIONS (1)
  - Cerebral haemorrhage [Not Recovered/Not Resolved]

NARRATIVE: CASE EVENT DATE: 20160227
